FAERS Safety Report 11049300 (Version 1)
Quarter: 2015Q2

REPORT INFORMATION
  Report Type: Other
  Country: DE (occurrence: DE)
  Receive Date: 20150420
  Receipt Date: 20150420
  Transmission Date: 20150821
  Serious: Yes (Other)
  Sender: FDA-Public Use
  Company Number: DE-MYLANLABS-2015M1011258

PATIENT

DRUGS (3)
  1. MIRTAZAPIN [Suspect]
     Active Substance: MIRTAZAPINE
     Dosage: 15 MG, UNK
     Route: 048
     Dates: start: 20150210, end: 20150303
  2. MIRTAZAPIN [Suspect]
     Active Substance: MIRTAZAPINE
     Dosage: 30 MG, UNK
     Route: 048
     Dates: start: 20150102, end: 20150210
  3. MIRTAZAPIN [Suspect]
     Active Substance: MIRTAZAPINE
     Indication: DEPRESSION
     Dosage: 15 MG, UNK
     Route: 048
     Dates: start: 20141207, end: 20150102

REACTIONS (4)
  - Suspiciousness [Recovering/Resolving]
  - Hypertension [Recovering/Resolving]
  - Body temperature increased [Recovering/Resolving]
  - Jealous delusion [Recovering/Resolving]

NARRATIVE: CASE EVENT DATE: 201501
